FAERS Safety Report 12009544 (Version 1)
Quarter: 2016Q1

REPORT INFORMATION
  Report Type: Report from Study
  Country: EG (occurrence: EG)
  Receive Date: 20160205
  Receipt Date: 20160205
  Transmission Date: 20160526
  Serious: Yes (Other)
  Sender: FDA-Public Use
  Company Number: EG-ROCHE-1704763

PATIENT

DRUGS (2)
  1. BEVACIZUMAB [Suspect]
     Active Substance: BEVACIZUMAB
     Indication: GLAUCOMA
     Dosage: 2.5MG IN 0.2 ML INJECTED SUBCONJUNCTIVALLY AROUND THE BLEB
     Route: 057
  2. MITOMYCIN C [Suspect]
     Active Substance: MITOMYCIN
     Indication: GLAUCOMA
     Dosage: 0.4MG/ML FOR 3MIN UNDER AND AROUND THE SCLERAL FLAP
     Route: 050

REACTIONS (1)
  - Flat anterior chamber of eye [Recovered/Resolved]
